FAERS Safety Report 10020631 (Version 1)
Quarter: 2014Q1

REPORT INFORMATION
  Report Type: Spontaneous
  Country: BR (occurrence: BR)
  Receive Date: 20140319
  Receipt Date: 20140319
  Transmission Date: 20141002
  Serious: Yes (Other)
  Sender: FDA-Public Use
  Company Number: BR-UCBSA-114800

PATIENT
  Age: 29 Year
  Sex: Female
  Weight: 56 kg

DRUGS (6)
  1. CIMZIA [Suspect]
     Indication: RHEUMATOID ARTHRITIS
     Dosage: 200 MG/ML 2 INJECTIONS EVERY 15 DAYS
     Route: 058
     Dates: start: 20130917
  2. CIMZIA [Suspect]
     Indication: RHEUMATOID ARTHRITIS
     Dosage: 200 MG/ML 2 INJECTIONS EVERY MONTH
     Route: 058
     Dates: end: 20140221
  3. METHOTREXATE [Concomitant]
     Dosage: 1 ML WEEK
     Dates: start: 2010
  4. CALCIUM CARBONATE [Concomitant]
     Dates: start: 2010
  5. PREDNISONE [Concomitant]
     Dosage: DAILY DOSE: 10 MG
     Dates: start: 2010
  6. FOLIC ACID [Concomitant]
     Dosage: 10 MG WEEK
     Dates: start: 2010

REACTIONS (2)
  - Erythema [Recovering/Resolving]
  - Skin discolouration [Recovering/Resolving]
